FAERS Safety Report 24910928 (Version 1)
Quarter: 2025Q1

REPORT INFORMATION
  Report Type: Spontaneous
  Country: US (occurrence: None)
  Receive Date: 20250130
  Receipt Date: 20250130
  Transmission Date: 20250409
  Serious: Yes (Other)
  Sender: FDA-CTU
  Company Number: None

PATIENT
  Age: 78 Year
  Sex: Female
  Weight: 67.5 kg

DRUGS (1)
  1. BIVIGAM [Suspect]
     Active Substance: HUMAN IMMUNOGLOBULIN G
     Indication: COVID-19
     Route: 041
     Dates: start: 20250128, end: 20250128

REACTIONS (9)
  - Infusion related reaction [None]
  - Erythema [None]
  - Rash [None]
  - Pruritus [None]
  - Rash [None]
  - Hypoaesthesia oral [None]
  - Dysphagia [None]
  - Lip swelling [None]
  - Hypotension [None]

NARRATIVE: CASE EVENT DATE: 20250128
